FAERS Safety Report 7904771-9 (Version None)
Quarter: 2011Q4

REPORT INFORMATION
  Report Type: 
  Country: None (occurrence: None)
  Receive Date: 20111109
  Receipt Date: 20111031
  Transmission Date: 20120403
  Serious: Yes (Other)
  Sender: FDA-Public Use
  Company Number: US-BAYER-201012549NA

PATIENT
  Age: 31 Year
  Sex: Female
  Weight: 84 kg

DRUGS (5)
  1. YASMIN [Suspect]
     Indication: METRORRHAGIA
     Dosage: 1 DF (DAILY DOSE), QD, ORAL
     Route: 048
     Dates: start: 20011201, end: 20060101
  2. ALLEGRA [Concomitant]
  3. NAPROXEN [Concomitant]
  4. YASMIN [Suspect]
  5. ALBUTEROL INHALER [Concomitant]

REACTIONS (4)
  - CHOLECYSTITIS [None]
  - INJURY [None]
  - CHOLELITHIASIS [None]
  - BILIARY DYSKINESIA [None]
